FAERS Safety Report 13847850 (Version 1)
Quarter: 2017Q3

REPORT INFORMATION
  Report Type: Spontaneous
  Country: US (occurrence: US)
  Receive Date: 20170808
  Receipt Date: 20170808
  Transmission Date: 20171127
  Serious: Yes (Other)
  Sender: FDA-Public Use
  Company Number: None

PATIENT
  Age: 25 Year
  Sex: Female
  Weight: 72 kg

DRUGS (1)
  1. BUPRENORPHINE/NALOXONE [Suspect]
     Active Substance: BUPRENORPHINE\NALOXONE
     Indication: DRUG DEPENDENCE
     Route: 060
     Dates: start: 20170508, end: 20170727

REACTIONS (7)
  - Product solubility abnormal [None]
  - Treatment noncompliance [None]
  - Nausea [None]
  - Malabsorption from administration site [None]
  - Food aversion [None]
  - Wrong technique in product usage process [None]
  - Laboratory test abnormal [None]

NARRATIVE: CASE EVENT DATE: 20170801
